FAERS Safety Report 24257242 (Version 1)
Quarter: 2024Q3

REPORT INFORMATION
  Report Type: Spontaneous
  Country: KR (occurrence: KR)
  Receive Date: 20240828
  Receipt Date: 20240828
  Transmission Date: 20241017
  Serious: Yes (Other)
  Sender: CELLTRION
  Company Number: KR-CELLTRION INC.-2024KR020143

PATIENT

DRUGS (4)
  1. INFLIXIMAB [Suspect]
     Active Substance: INFLIXIMAB
     Indication: Colitis ulcerative
     Dosage: 120 MG EVERY OTHER WEEK
     Dates: start: 202101, end: 202301
  2. INFLIXIMAB [Suspect]
     Active Substance: INFLIXIMAB
     Indication: Colitis ulcerative
     Dosage: 5 MG/KG AT 8-WEEKS INTERVAL
     Dates: start: 202101, end: 202301
  3. METHOTREXATE [Concomitant]
     Active Substance: METHOTREXATE
  4. MESALAMINE [Concomitant]
     Active Substance: MESALAMINE

REACTIONS (1)
  - Prostate cancer [Unknown]
